FAERS Safety Report 13384122 (Version 1)
Quarter: 2017Q1

REPORT INFORMATION
  Report Type: Spontaneous
  Country: US (occurrence: US)
  Receive Date: 20170329
  Receipt Date: 20170329
  Transmission Date: 20170429
  Serious: No
  Sender: FDA-Public Use
  Company Number: US-WARNER CHILCOTT-2016-002720

PATIENT
  Age: 72 Year
  Sex: Female
  Weight: 54.42 kg

DRUGS (2)
  1. LOSARTAN. [Concomitant]
     Active Substance: LOSARTAN
     Indication: HYPERTENSION
     Dosage: 50 MG DAILY
     Route: 048
     Dates: start: 2016
  2. ESTRACE [Suspect]
     Active Substance: ESTRADIOL
     Indication: VULVOVAGINAL DRYNESS
     Dosage: 1 G, 3 TIMES WEEKLY
     Route: 067
     Dates: start: 20160920, end: 20160928

REACTIONS (7)
  - Nipple pain [Recovered/Resolved]
  - Breast cyst [Recovering/Resolving]
  - Hyperaesthesia [Recovered/Resolved]
  - Breast discharge [Recovered/Resolved]
  - Discomfort [Recovered/Resolved]
  - Breast pain [Recovered/Resolved]
  - Breast mass [Recovering/Resolving]

NARRATIVE: CASE EVENT DATE: 2016
